FAERS Safety Report 12424538 (Version 1)
Quarter: 2016Q2

REPORT INFORMATION
  Report Type: Spontaneous
  Country: US (occurrence: US)
  Receive Date: 20160601
  Receipt Date: 20160601
  Transmission Date: 20160815
  Serious: No
  Sender: FDA-Public Use
  Company Number: US-NOVEN PHARMACEUTICALS, INC.-US2016000122

PATIENT

DRUGS (8)
  1. LEXAPRO [Concomitant]
     Active Substance: ESCITALOPRAM OXALATE
  2. GUANFACINE. [Concomitant]
     Active Substance: GUANFACINE
  3. FLOVENT [Concomitant]
     Active Substance: FLUTICASONE PROPIONATE
  4. VENTOLIN [Concomitant]
     Active Substance: ALBUTEROL SULFATE
  5. CLARITIN [Concomitant]
     Active Substance: LORATADINE
  6. VITAMIN D [Concomitant]
     Active Substance: CHOLECALCIFEROL
  7. PERPHENAZINE. [Concomitant]
     Active Substance: PERPHENAZINE
  8. DAYTRANA [Suspect]
     Active Substance: METHYLPHENIDATE
     Indication: ATTENTION DEFICIT/HYPERACTIVITY DISORDER
     Dosage: 20 MG, UNKNOWN
     Route: 062
     Dates: start: 20160120

REACTIONS (1)
  - Application site irritation [Unknown]

NARRATIVE: CASE EVENT DATE: 201601
